FAERS Safety Report 19922855 (Version 1)
Quarter: 2021Q4

REPORT INFORMATION
  Report Type: Spontaneous
  Country: DE (occurrence: DE)
  Receive Date: 20211005
  Receipt Date: 20211005
  Transmission Date: 20220303
  Serious: Yes (Other)
  Sender: FDA-Public Use
  Company Number: DE-INCYTE CORPORATION-2021IN008943

PATIENT

DRUGS (1)
  1. ICLUSIG [Suspect]
     Active Substance: PONATINIB
     Indication: Philadelphia positive chronic myeloid leukaemia
     Dosage: UNK
     Route: 065

REACTIONS (2)
  - Blast cell crisis [Unknown]
  - Wrong technique in product usage process [Unknown]
